FAERS Safety Report 4423356-2 (Version None)
Quarter: 2004Q3

REPORT INFORMATION
  Report Type: 
  Country: None (occurrence: None)
  Receive Date: 20040713
  Receipt Date: 20031027
  Transmission Date: 20050211
  Serious: No
  Sender: FDA-Public Use
  Company Number: PHEH2003US09906

PATIENT
  Age: 5 Year
  Sex: Male

DRUGS (2)
  1. ELIDEL [Suspect]
     Indication: DRY SKIN
     Dosage: TOPICAL
     Route: 061
     Dates: start: 20031026, end: 20031026
  2. SINGULAIR ^MERCK^ (MONTELUKAST SODIUM) [Concomitant]

REACTIONS (3)
  - APPLICATION SITE BURNING [None]
  - APPLICATION SITE PRURITUS [None]
  - SCREAMING [None]
